FAERS Safety Report 12970282 (Version 2)
Quarter: 2017Q1

REPORT INFORMATION
  Report Type: Spontaneous
  Country: US (occurrence: US)
  Receive Date: 20161123
  Receipt Date: 20170105
  Transmission Date: 20170428
  Serious: No
  Sender: FDA-Public Use
  Company Number: US-PFIZER INC-2016538452

PATIENT
  Age: 8 Year
  Sex: Male
  Weight: 24.4 kg

DRUGS (6)
  1. ASPIRIN CHILDREN [Concomitant]
     Active Substance: ASPIRIN
  2. REVATIO [Suspect]
     Active Substance: SILDENAFIL CITRATE
     Indication: RIGHT VENTRICULAR FAILURE
     Dosage: 8 MG, 3X/DAY (TAKE 0.8 ML (8 MG) THREE TIMES A DAY)
     Route: 048
     Dates: start: 2013
  3. SINGULAIR [Concomitant]
     Active Substance: MONTELUKAST SODIUM
     Dosage: 4 MG, 1X/DAY
  4. BABY ASPIRIN [Concomitant]
     Active Substance: ASPIRIN
     Dosage: UNK UNK, DAILY (ONE-HALF TABLET Q DAY)
  5. LISINOPRIL. [Concomitant]
     Active Substance: LISINOPRIL
     Dosage: UNK
  6. REVATIO [Suspect]
     Active Substance: SILDENAFIL CITRATE
     Indication: DOUBLE OUTLET RIGHT VENTRICLE
     Dosage: 0.8 ML, 3X/DAY

REACTIONS (6)
  - Drug dose omission [Unknown]
  - Cough [Recovered/Resolved]
  - Influenza [Recovered/Resolved]
  - Drug administered to patient of inappropriate age [Unknown]
  - Pyrexia [Recovered/Resolved]
  - Product use issue [Unknown]
